FAERS Safety Report 13242884 (Version 1)
Quarter: 2017Q1

REPORT INFORMATION
  Report Type: Spontaneous
  Country: US (occurrence: US)
  Receive Date: 20170216
  Receipt Date: 20170216
  Transmission Date: 20170428
  Serious: Yes (Disabling)
  Sender: FDA-Public Use
  Company Number: None

PATIENT
  Age: 28 Year
  Sex: Female
  Weight: 76.5 kg

DRUGS (13)
  1. CIRCUMEN [Concomitant]
  2. CHIROPRACTIC CARE [Concomitant]
  3. FISH OIL [Concomitant]
     Active Substance: FISH OIL
  4. TURMERIC [Concomitant]
     Active Substance: TURMERIC
  5. HEATING PADS [Concomitant]
  6. IBUPROFEN. [Concomitant]
     Active Substance: IBUPROFEN
  7. BROMELAIN [Concomitant]
     Active Substance: BROMELAINS
  8. VITAMIN B6 [Concomitant]
     Active Substance: PYRIDOXINE HYDROCHLORIDE
  9. ACUPUNCTURE [Concomitant]
     Active Substance: DEVICE
  10. LUPRON DEPOT [Suspect]
     Active Substance: LEUPROLIDE ACETATE
     Indication: ENDOMETRIOSIS
     Dosage: 2 INJECTION(S); ONCE PER 3 MONTHS; INTRAMUSCULAR?
     Route: 030
  11. ESSENTIAL OILS. [Concomitant]
     Active Substance: ESSENTIAL OILS
  12. NAPROXEN. [Concomitant]
     Active Substance: NAPROXEN
  13. QUERCETIN [Concomitant]
     Active Substance: QUERCETIN

REACTIONS (14)
  - Sciatica [None]
  - Neck pain [None]
  - Activities of daily living impaired [None]
  - Vulvovaginal dryness [None]
  - Drug ineffective [None]
  - Musculoskeletal pain [None]
  - Temporomandibular joint syndrome [None]
  - Headache [None]
  - Discomfort [None]
  - Arthralgia [None]
  - Hot flush [None]
  - Libido decreased [None]
  - Weight increased [None]
  - Pain in jaw [None]

NARRATIVE: CASE EVENT DATE: 20150410
